FAERS Safety Report 6582990-4 (Version None)
Quarter: 2010Q1

REPORT INFORMATION
  Report Type: 
  Country: None (occurrence: None)
  Receive Date: 20100216
  Receipt Date: 20100201
  Transmission Date: 20100710
  Serious: Yes (Other)
  Sender: FDA-Public Use
  Company Number: US-ROCHE-632810

PATIENT
  Sex: Male
  Weight: 59 kg

DRUGS (6)
  1. ACCUTANE [Suspect]
     Indication: ACNE
     Route: 065
     Dates: start: 19850821, end: 19851101
  2. ACCUTANE [Suspect]
     Route: 065
     Dates: start: 19851101, end: 19860120
  3. ACCUTANE [Suspect]
     Route: 065
     Dates: start: 19870923, end: 19871223
  4. CLEOCIN [Concomitant]
     Indication: ACNE
     Dates: start: 19851120
  5. E.E.S. [Concomitant]
     Indication: ACNE
     Dosage: 400 ONE  T.I.D WITH MEALS
     Dates: start: 19850821
  6. BENZAGEL [Concomitant]
     Indication: ACNE
     Dates: start: 19850821

REACTIONS (6)
  - ANAL FISSURE [None]
  - COLITIS [None]
  - CROHN'S DISEASE [None]
  - DEPRESSION [None]
  - INFLAMMATORY BOWEL DISEASE [None]
  - ORAL HERPES [None]
